FAERS Safety Report 9781600 (Version 1)
Quarter: 2013Q4

REPORT INFORMATION
  Report Type: Spontaneous
  Country: US (occurrence: US)
  Receive Date: 20131224
  Receipt Date: 20131224
  Transmission Date: 20140711
  Serious: No
  Sender: FDA-Public Use
  Company Number: US-TEVA-445259USA

PATIENT
  Age: 37 Year
  Sex: Female
  Weight: 69.92 kg

DRUGS (2)
  1. PARAGARD 380A [Suspect]
     Indication: CONTRACEPTION
     Route: 015
     Dates: start: 20130626, end: 20130903
  2. SYNTHROID [Concomitant]
     Indication: HYPOTHYROIDISM
     Route: 048

REACTIONS (4)
  - Menorrhagia [Unknown]
  - Pelvic pain [Unknown]
  - Abdominal pain [Recovered/Resolved]
  - Device expulsion [Recovered/Resolved]
